FAERS Safety Report 8923878 (Version 1)
Quarter: 2012Q4

REPORT INFORMATION
  Report Type: 
  Country: EC (occurrence: EC)
  Receive Date: 20121126
  Receipt Date: 20121126
  Transmission Date: 20130627
  Serious: Yes (Death)
  Sender: FDA-Public Use
  Company Number: EC-PFIZER INC-2012294926

PATIENT
  Age: 75 Year
  Sex: Male

DRUGS (1)
  1. LYRICA [Suspect]
     Dosage: 300 mg, 1x/day
     Route: 048
     Dates: start: 200802

REACTIONS (1)
  - Renal failure [Fatal]
